FAERS Safety Report 20593438 (Version 1)
Quarter: 2022Q1

REPORT INFORMATION
  Report Type: Spontaneous
  Country: US (occurrence: None)
  Receive Date: 20220315
  Receipt Date: 20220315
  Transmission Date: 20220423
  Serious: No
  Sender: FDA-Public Use
  Company Number: US-ROCHE-2902103

PATIENT
  Age: 62 Year
  Sex: Female
  Weight: 63.106 kg

DRUGS (9)
  1. XOLAIR [Suspect]
     Active Substance: OMALIZUMAB
     Indication: Asthma
     Dosage: ONE INJECTION IN EACH ARM
     Route: 058
     Dates: start: 20210813
  2. PREDNISONE [Concomitant]
     Active Substance: PREDNISONE
     Indication: Asthma
     Dosage: TAKE TWO PILLS TWICE DAILY
     Route: 048
     Dates: start: 20210816, end: 20210831
  3. RESTASIS [Concomitant]
     Active Substance: CYCLOSPORINE
     Indication: Dry eye
     Dosage: INSTILL ONE DROP PER EYE TWICE A DAY
     Route: 031
     Dates: start: 202003
  4. BREO ELLIPTA [Concomitant]
     Active Substance: FLUTICASONE FUROATE\VILANTEROL TRIFENATATE
     Indication: Asthma
     Dosage: TAKE ONCE A DAY IN THE MORNING
     Route: 055
     Dates: start: 2016
  5. SINGULAIR [Concomitant]
     Active Substance: MONTELUKAST SODIUM
     Indication: Asthma
     Route: 055
  6. LOSARTAN [Concomitant]
     Active Substance: LOSARTAN
     Indication: Hypertension
     Dosage: TAKE ONE PILL DAILY
     Route: 048
     Dates: start: 2020
  7. LOVASTATIN [Concomitant]
     Active Substance: LOVASTATIN
     Indication: Blood cholesterol increased
     Dosage: TAKE ONE PILL DAILY
     Route: 048
     Dates: start: 2013
  8. EPIPEN [Concomitant]
     Active Substance: EPINEPHRINE
     Indication: Hypersensitivity
     Route: 065
     Dates: start: 2020
  9. ALLERGY SHOTS (IMMUNOTHERAPY) [Concomitant]
     Indication: Hypersensitivity
     Dosage: ONE SHOT EVERY TWO WEEKS
     Route: 065

REACTIONS (18)
  - Asthma [Not Recovered/Not Resolved]
  - Poor venous access [Unknown]
  - Back pain [Not Recovered/Not Resolved]
  - Dysphonia [Not Recovered/Not Resolved]
  - Secretion discharge [Recovering/Resolving]
  - Throat tightness [Not Recovered/Not Resolved]
  - Decreased appetite [Not Recovered/Not Resolved]
  - Pain [Not Recovered/Not Resolved]
  - Chest discomfort [Not Recovered/Not Resolved]
  - Electric shock sensation [Not Recovered/Not Resolved]
  - Palpitations [Recovered/Resolved]
  - Hypotension [Not Recovered/Not Resolved]
  - Feeling jittery [Recovered/Resolved]
  - Anxiety [Not Recovered/Not Resolved]
  - Blood pressure fluctuation [Not Recovered/Not Resolved]
  - Dizziness [Recovered/Resolved]
  - Panic attack [Not Recovered/Not Resolved]
  - Stress [Not Recovered/Not Resolved]

NARRATIVE: CASE EVENT DATE: 20210814
